FAERS Safety Report 20994429 (Version 1)
Quarter: 2022Q2

REPORT INFORMATION
  Report Type: Report from Study
  Country: US (occurrence: US)
  Receive Date: 20220622
  Receipt Date: 20220622
  Transmission Date: 20220721
  Serious: Yes (Life-Threatening, Other)
  Sender: FDA-Public Use
  Company Number: US-RPC-1063-MS-001-1251006-20201125-0001SG

PATIENT
  Age: 49 Year
  Sex: Female

DRUGS (13)
  1. ADVIL [Concomitant]
     Active Substance: IBUPROFEN
     Indication: Headache
     Dosage: FREQUENCY TEXT: PRN?200 MG X PRN
     Route: 048
     Dates: start: 2014
  2. AMANTADINE [Concomitant]
     Active Substance: AMANTADINE
     Indication: Fatigue
     Dosage: 100 MG X 2 X 1 DAYS
     Route: 048
     Dates: start: 201912
  3. PROLIA [Concomitant]
     Active Substance: DENOSUMAB
     Indication: Osteoporosis
     Dosage: 60 MG
     Route: 058
     Dates: start: 201703
  4. ZYRTEC [Concomitant]
     Active Substance: CETIRIZINE HYDROCHLORIDE
     Indication: Seasonal allergy
     Dosage: FREQUENCY TEXT: PRN?10 MG X PRN
     Route: 048
     Dates: start: 2010
  5. CONCERTA [Concomitant]
     Active Substance: METHYLPHENIDATE HYDROCHLORIDE
     Indication: Fatigue
     Dosage: 54 MG X 1 X 1 DAYS
     Route: 048
     Dates: start: 20200915
  6. CYANOCOBALAMIN [Concomitant]
     Active Substance: CYANOCOBALAMIN
     Indication: Supplementation therapy
     Dosage: 1000 UG X 1 X 1 MONTHS
     Route: 030
     Dates: start: 20160914
  7. FAMOTIDINE [Concomitant]
     Active Substance: FAMOTIDINE
     Indication: Gastrooesophageal reflux disease
     Dosage: FREQUENCY TEXT: PRN?20 MG X PRN
     Route: 048
     Dates: start: 20200507
  8. GABAPENTIN [Concomitant]
     Active Substance: GABAPENTIN
     Indication: Neuropathy peripheral
     Dosage: 300 MG X 3 X 1 DAYS
     Route: 048
     Dates: start: 20180413
  9. LATANOPROST 0.005% SOLUTION [Concomitant]
     Indication: Product used for unknown indication
     Dosage: 1 GTT X 1 X 1 DAYS
     Route: 031
     Dates: start: 20160922
  10. MIRALAX [Concomitant]
     Active Substance: POLYETHYLENE GLYCOL 3350
     Indication: Constipation
     Dosage: 1 CAPFUL X 1 X 1 DAYS
     Route: 048
     Dates: start: 20171103
  11. NITRO-BID 2% OINTMENT [Concomitant]
     Indication: Raynaud^s phenomenon
     Dosage: FREQUENCY TEXT: PRN?1 APPLICATION X PRN
     Route: 061
     Dates: start: 20160311
  12. ONDANSETRON HCL [Concomitant]
     Active Substance: ONDANSETRON HYDROCHLORIDE
     Indication: Vertigo
     Dosage: FREQUENCY TEXT: PRN?4 MG X PRN
     Route: 048
     Dates: start: 20200507
  13. VITAMIN D3 [Concomitant]
     Active Substance: CHOLECALCIFEROL
     Indication: Vitamin D deficiency
     Dosage: 5000 IU X 1 X 1 DAYS
     Route: 048
     Dates: start: 20160526

REACTIONS (1)
  - Squamous cell carcinoma [Recovered/Resolved]

NARRATIVE: CASE EVENT DATE: 20201109
